FAERS Safety Report 18801367 (Version 1)
Quarter: 2021Q1

REPORT INFORMATION
  Report Type: Spontaneous
  Country: PT (occurrence: PT)
  Receive Date: 20210128
  Receipt Date: 20210128
  Transmission Date: 20210419
  Serious: Yes (Other)
  Sender: FDA-Public Use
  Company Number: PT-FRESENIUS KABI-FK202100901

PATIENT
  Age: 28 Year
  Sex: Female

DRUGS (9)
  1. CARBOPLATIN (MANUFACTURER UNKNOWN) [Suspect]
     Active Substance: CARBOPLATIN
     Indication: NEPHROBLASTOMA
     Dosage: CUMULATIVE DOSES: 1380 MG/M2
     Route: 065
  2. ETOPOSIDE. [Suspect]
     Active Substance: ETOPOSIDE
     Indication: METASTASES TO SPINAL CORD
  3. CARBOPLATIN (MANUFACTURER UNKNOWN) [Suspect]
     Active Substance: CARBOPLATIN
     Indication: METASTASES TO SPINAL CORD
  4. EPIRUBICIN [Suspect]
     Active Substance: EPIRUBICIN
     Indication: METASTASES TO SPINAL CORD
  5. EPIRUBICIN [Suspect]
     Active Substance: EPIRUBICIN
     Indication: NEPHROBLASTOMA
     Dosage: CUMULATIVE DOSES: 390 MG/M2
     Route: 065
  6. ETHINYLESTRADIOL/GESTODENE [Suspect]
     Active Substance: ETHINYL ESTRADIOL\GESTODENE
     Indication: ORAL CONTRACEPTION
     Route: 048
  7. ETOPOSIDE. [Suspect]
     Active Substance: ETOPOSIDE
     Indication: NEPHROBLASTOMA
     Dosage: CUMULATIVE DOSES: 780 MG/M2
     Route: 065
  8. IFOSFAMIDE. [Suspect]
     Active Substance: IFOSFAMIDE
     Indication: METASTASES TO SPINAL CORD
  9. IFOSFAMIDE. [Suspect]
     Active Substance: IFOSFAMIDE
     Indication: NEPHROBLASTOMA
     Dosage: CUMULATIVE DOSES: 22500 MG/M2
     Route: 065

REACTIONS (2)
  - Vena cava thrombosis [Recovered/Resolved]
  - Inferior vena cava syndrome [Recovered/Resolved]
